FAERS Safety Report 9551011 (Version 1)
Quarter: 2013Q3

REPORT INFORMATION
  Report Type: Spontaneous
  Country: US (occurrence: US)
  Receive Date: 20130924
  Receipt Date: 20130924
  Transmission Date: 20140515
  Serious: No
  Sender: FDA-Public Use
  Company Number: US-SANOFI-AVENTIS-2013SA052060

PATIENT
  Age: 48 Year
  Sex: Female
  Weight: 86 kg

DRUGS (5)
  1. AUBAGIO [Suspect]
     Indication: MULTIPLE SCLEROSIS
     Route: 048
     Dates: start: 20130406
  2. NASONEX [Concomitant]
     Indication: HYPERSENSITIVITY
     Dates: start: 20120826
  3. VITAMIN D [Concomitant]
     Indication: VITAMIN D DEFICIENCY
     Dates: start: 2010
  4. THYROXIN [Concomitant]
     Indication: THYROIDITIS
     Dates: start: 20120812
  5. VENLAFAXINE [Concomitant]
     Indication: DEPRESSION
     Dates: start: 2010

REACTIONS (7)
  - Photosensitivity reaction [Unknown]
  - Cheilitis [Unknown]
  - Pain in extremity [Not Recovered/Not Resolved]
  - Oral discomfort [Not Recovered/Not Resolved]
  - Alopecia [Unknown]
  - Hypoaesthesia oral [Not Recovered/Not Resolved]
  - Headache [Not Recovered/Not Resolved]
